FAERS Safety Report 5589811-7 (Version None)
Quarter: 2008Q1

REPORT INFORMATION
  Report Type: 
  Country: None (occurrence: None)
  Receive Date: 20080110
  Receipt Date: 20080110
  Transmission Date: 20080703
  Serious: Yes (Life-Threatening)
  Sender: FDA-Public Use
  Company Number: None

PATIENT
  Sex: Male
  Weight: 74.8435 kg

DRUGS (1)
  1. ALEVE [Suspect]
     Indication: ANALGESIA
     Dosage: 220MG AS NEEDED PO
     Route: 048
     Dates: start: 19980409, end: 19980708

REACTIONS (2)
  - RESPIRATORY DISORDER [None]
  - SWELLING [None]
